FAERS Safety Report 24301465 (Version 1)
Quarter: 2024Q3

REPORT INFORMATION
  Report Type: Spontaneous
  Country: US (occurrence: US)
  Receive Date: 20240910
  Receipt Date: 20240910
  Transmission Date: 20241017
  Serious: Yes (Other)
  Sender: CHIESI
  Company Number: US-CHIESI-2024CHF05797

PATIENT
  Age: 59 Year
  Sex: Male

DRUGS (3)
  1. KENGREAL [Suspect]
     Active Substance: CANGRELOR
     Indication: Ventricular drainage
     Dosage: UNK
     Route: 042
     Dates: start: 20240827
  2. KENGREAL [Suspect]
     Active Substance: CANGRELOR
     Indication: Stent placement
  3. KENGREAL [Suspect]
     Active Substance: CANGRELOR
     Indication: Off label use

REACTIONS (6)
  - Vascular stent thrombosis [Unknown]
  - Haematocrit decreased [Unknown]
  - Off label use [Not Recovered/Not Resolved]
  - Off label use [Not Recovered/Not Resolved]
  - Drug ineffective for unapproved indication [Unknown]
  - Off label use [Not Recovered/Not Resolved]

NARRATIVE: CASE EVENT DATE: 20240801
